FAERS Safety Report 12939344 (Version 2)
Quarter: 2016Q4

REPORT INFORMATION
  Report Type: Spontaneous
  Country: US (occurrence: US)
  Receive Date: 20161115
  Receipt Date: 20161212
  Transmission Date: 20170207
  Serious: Yes (Hospitalization)
  Sender: FDA-Public Use
  Company Number: US-TAIHO ONCOLOGY INC-EU-2016-02925

PATIENT
  Sex: Female

DRUGS (1)
  1. LONSURF [Suspect]
     Active Substance: TIPIRACIL HYDROCHLORIDE\TRIFLURIDINE
     Indication: COLON CANCER
     Dosage: CYCLE 4
     Route: 048
     Dates: start: 20161102

REACTIONS (6)
  - Unevaluable event [Unknown]
  - Alopecia [Unknown]
  - Nasopharyngitis [Unknown]
  - Madarosis [Unknown]
  - Skin reaction [Unknown]
  - Lip swelling [Unknown]

NARRATIVE: CASE EVENT DATE: 2016
